FAERS Safety Report 9767372 (Version 1)
Quarter: 2013Q4

REPORT INFORMATION
  Report Type: Spontaneous
  Country: US (occurrence: None)
  Receive Date: 20131216
  Receipt Date: 20131216
  Transmission Date: 20140711
  Serious: No
  Sender: FDA-Public Use
  Company Number: None

PATIENT
  Age: 34 Year
  Sex: Female

DRUGS (1)
  1. TECFIDERA [Suspect]
     Indication: MULTIPLE SCLEROSIS
     Dosage: 120/240 MG TECFIDERA STARTER BID X 7D BID THEREAFTER
     Route: 048
     Dates: start: 20131122

REACTIONS (2)
  - Palpitations [None]
  - Condition aggravated [None]
